FAERS Safety Report 8126398-9 (Version None)
Quarter: 2012Q1

REPORT INFORMATION
  Report Type: 
  Country: None (occurrence: None)
  Receive Date: 20120209
  Receipt Date: 20120120
  Transmission Date: 20120608
  Serious: Yes (Hospitalization)
  Sender: FDA-Public Use
  Company Number: PHHO2011US019595

PATIENT
  Age: 49 Year
  Sex: Female
  Weight: 55.7 kg

DRUGS (15)
  1. IMODIUM [Concomitant]
  2. AFINITOR [Suspect]
     Indication: COLORECTAL CANCER
     Dosage: 5 MG, UNK
     Route: 048
     Dates: start: 20101117, end: 20110316
  3. FLUOROURACIL [Concomitant]
     Indication: COLORECTAL CANCER
     Dosage: UNK
     Dates: start: 20101117, end: 20110316
  4. FLUOROURACIL [Concomitant]
     Dosage: UNK
     Dates: start: 20110603, end: 20111111
  5. LEUCOVORIN CALCIUM [Concomitant]
     Indication: COLORECTAL CANCER
     Dosage: UNK
     Dates: start: 20101117, end: 20110316
  6. LOMOTIL [Concomitant]
  7. OXALIPLATIN [Suspect]
     Indication: COLORECTAL CANCER
     Dosage: UNK
     Dates: start: 20101117, end: 20110316
  8. LEUCOVORIN CALCIUM [Concomitant]
     Dosage: UNK
     Dates: start: 20110603, end: 20111111
  9. ATIVAN [Concomitant]
  10. ONDANSETRON HCL [Concomitant]
  11. COMPAZINE [Concomitant]
  12. OXALIPLATIN [Suspect]
     Dosage: UNK
     Dates: start: 20110603, end: 20111111
  13. FOLFIRI [Concomitant]
     Indication: COLORECTAL CANCER
  14. AFINITOR [Suspect]
     Dosage: 5 MG, UNK
     Route: 048
     Dates: start: 20110603, end: 20111112
  15. AVASTIN [Concomitant]
     Indication: COLORECTAL CANCER
     Dosage: UNK

REACTIONS (1)
  - PANCREATITIS ACUTE [None]
